FAERS Safety Report 14421589 (Version 2)
Quarter: 2018Q1

REPORT INFORMATION
  Report Type: Spontaneous
  Country: JP (occurrence: JP)
  Receive Date: 20180122
  Receipt Date: 20180208
  Transmission Date: 20180509
  Serious: Yes (Other)
  Sender: FDA-Public Use
  Company Number: JP-AMGEN-JPNSP2018009063

PATIENT
  Age: 67 Year
  Sex: Male
  Weight: 52 kg

DRUGS (9)
  1. OXALIPLATIN. [Suspect]
     Active Substance: OXALIPLATIN
     Indication: RECTAL CANCER
     Dosage: UNK
     Route: 041
  2. G-LASTA [Suspect]
     Active Substance: PEGFILGRASTIM
     Indication: FEBRILE NEUTROPENIA
     Dosage: UNK
     Route: 065
  3. RAMUCIRUMAB [Suspect]
     Active Substance: RAMUCIRUMAB
     Indication: RECTAL CANCER
     Dosage: 8 MG/KG, UNK
     Route: 041
  4. 5-FU                               /00098801/ [Suspect]
     Active Substance: FLUOROURACIL
     Indication: RECTAL CANCER
     Dosage: UNK
     Route: 040
  5. 5-FU                               /00098801/ [Suspect]
     Active Substance: FLUOROURACIL
     Dosage: UNK
     Route: 041
  6. LEVOFOLINATE CALCIUM [Suspect]
     Active Substance: LEVOLEUCOVORIN CALCIUM
     Dosage: UNK
     Route: 041
  7. PANITUMUMAB [Suspect]
     Active Substance: PANITUMUMAB
     Indication: RECTAL CANCER
     Dosage: UNK
     Route: 041
  8. IRINOTECAN HYDROCHLORIDE. [Suspect]
     Active Substance: IRINOTECAN HYDROCHLORIDE
     Indication: RECTAL CANCER
     Dosage: 150 MG/M2, UNK
     Route: 041
  9. LEVOFOLINATE CALCIUM [Suspect]
     Active Substance: LEVOLEUCOVORIN CALCIUM
     Indication: RECTAL CANCER
     Dosage: UNK
     Route: 041

REACTIONS (4)
  - Febrile neutropenia [Unknown]
  - Hypertension [Unknown]
  - Epistaxis [Unknown]
  - Pneumonia [Unknown]
